FAERS Safety Report 15607781 (Version 1)
Quarter: 2018Q4

REPORT INFORMATION
  Report Type: Spontaneous
  Country: AZ (occurrence: AZ)
  Receive Date: 20181112
  Receipt Date: 20181112
  Transmission Date: 20190205
  Serious: Yes (Other)
  Sender: FDA-Public Use
  Company Number: AZ-JNJFOC-20181107382

PATIENT
  Age: 62 Year
  Sex: Female

DRUGS (2)
  1. RISPOLEPT [Suspect]
     Active Substance: RISPERIDONE
     Indication: VASCULAR DEMENTIA
     Route: 048
     Dates: start: 20181101, end: 20181102
  2. RISPOLEPT [Suspect]
     Active Substance: RISPERIDONE
     Indication: VASCULAR DEMENTIA
     Route: 048
     Dates: start: 20181102, end: 20181103

REACTIONS (3)
  - Off label use [Unknown]
  - Narcolepsy [Not Recovered/Not Resolved]
  - Product use in unapproved indication [Unknown]

NARRATIVE: CASE EVENT DATE: 20181101
